FAERS Safety Report 11926212 (Version 1)
Quarter: 2016Q1

REPORT INFORMATION
  Report Type: Spontaneous
  Country: LU (occurrence: LU)
  Receive Date: 20160119
  Receipt Date: 20160119
  Transmission Date: 20160526
  Serious: Yes (Hospitalization)
  Sender: FDA-Public Use
  Company Number: LU-ROCHE-1695057

PATIENT
  Age: 33 Year
  Sex: Male

DRUGS (4)
  1. ROCEPHIN [Suspect]
     Active Substance: CEFTRIAXONE SODIUM
     Indication: PYREXIA
     Route: 065
     Dates: start: 20151115, end: 20151125
  2. XENETIX [Concomitant]
     Active Substance: IOBITRIDOL
     Route: 065
     Dates: start: 20151115, end: 20151115
  3. NOVALGIN [Concomitant]
     Active Substance: METAMIZOLE SODIUM
     Indication: PYREXIA
     Route: 065
     Dates: start: 20151115, end: 20151115
  4. PARACETAMOL [Concomitant]
     Active Substance: ACETAMINOPHEN
     Indication: PYREXIA
     Route: 065
     Dates: start: 20151115

REACTIONS (2)
  - Acute kidney injury [Recovered/Resolved]
  - Hepatic enzyme increased [Recovered/Resolved]

NARRATIVE: CASE EVENT DATE: 20151115
